FAERS Safety Report 17213126 (Version 4)
Quarter: 2025Q3

REPORT INFORMATION
  Report Type: Report from Study
  Country: CO (occurrence: CO)
  Receive Date: 20191230
  Receipt Date: 20250818
  Transmission Date: 20251020
  Serious: Yes (Other)
  Sender: NOVARTIS
  Company Number: None

PATIENT
  Age: 43 Year
  Sex: Female
  Weight: 63 kg

DRUGS (7)
  1. TASIGNA [Suspect]
     Active Substance: NILOTINIB
     Indication: Chronic myeloid leukaemia
     Dosage: 150 MG, QID
     Route: 048
     Dates: start: 20160721
  2. TASIGNA [Suspect]
     Active Substance: NILOTINIB
     Dosage: 300 MG, QD
     Route: 048
  3. TASIGNA [Suspect]
     Active Substance: NILOTINIB
     Dosage: 150 MG, BID
     Route: 048
  4. TASIGNA [Suspect]
     Active Substance: NILOTINIB
     Dosage: 150 MG, QD
     Route: 048
  5. TASIGNA [Suspect]
     Active Substance: NILOTINIB
     Dosage: 1 DF, QMO
     Route: 048
  6. TASIGNA [Suspect]
     Active Substance: NILOTINIB
     Route: 048
  7. TASIGNA [Suspect]
     Active Substance: NILOTINIB
     Dosage: 300 MG, Q12H
     Route: 048
     Dates: start: 20180327

REACTIONS (33)
  - Hepatitis [Not Recovered/Not Resolved]
  - Arthralgia [Unknown]
  - Bone pain [Unknown]
  - Chest injury [Recovering/Resolving]
  - Illness [Unknown]
  - Malaise [Recovered/Resolved]
  - Renal pain [Unknown]
  - Splenitis [Not Recovered/Not Resolved]
  - Oedema [Unknown]
  - Swelling [Unknown]
  - Feeling abnormal [Not Recovered/Not Resolved]
  - Inflammation [Recovered/Resolved]
  - Balance disorder [Unknown]
  - Mobility decreased [Unknown]
  - Abdominal wall disorder [Unknown]
  - Abdominal wall oedema [Unknown]
  - Arthritis [Unknown]
  - Peripheral swelling [Unknown]
  - Pain [Recovering/Resolving]
  - Vomiting [Unknown]
  - Headache [Not Recovered/Not Resolved]
  - Abdominal pain [Recovered/Resolved]
  - Abdominal distension [Recovered/Resolved]
  - Abdominal distension [Unknown]
  - Back pain [Unknown]
  - Weight decreased [Unknown]
  - Decreased appetite [Unknown]
  - Fatigue [Unknown]
  - Laziness [Unknown]
  - Product packaging issue [Unknown]
  - Off label use [Unknown]
  - Product availability issue [Unknown]
  - Fall [Recovered/Resolved]

NARRATIVE: CASE EVENT DATE: 20170327
